FAERS Safety Report 7402138-3 (Version None)
Quarter: 2011Q2

REPORT INFORMATION
  Report Type: 
  Country: None (occurrence: None)
  Receive Date: 20110408
  Receipt Date: 20101102
  Transmission Date: 20111010
  Serious: Yes (Other)
  Sender: FDA-Public Use
  Company Number: US-BAYER-201022359NA

PATIENT
  Age: 28 Year
  Sex: Female
  Weight: 70.748 kg

DRUGS (3)
  1. METRONIDAZOLE [Concomitant]
     Dosage: UNK
     Dates: start: 20080718, end: 20080724
  2. YAZ [Suspect]
     Indication: CONTRACEPTION
     Dosage: UNK UNK, QD
     Route: 048
     Dates: start: 20071201, end: 20080701
  3. AZITHROMYCIN [Concomitant]
     Indication: INFECTION
     Dosage: UNK
     Dates: start: 20080718, end: 20080723

REACTIONS (6)
  - CHOLECYSTITIS CHRONIC [None]
  - VOMITING [None]
  - GALLBLADDER DISORDER [None]
  - PROCEDURAL PAIN [None]
  - GASTRIC DISORDER [None]
  - CHOLELITHIASIS [None]
